FAERS Safety Report 10151078 (Version 2)
Quarter: 2014Q2

REPORT INFORMATION
  Report Type: Spontaneous
  Country: US (occurrence: US)
  Receive Date: 20140502
  Receipt Date: 20140612
  Transmission Date: 20141212
  Serious: No
  Sender: FDA-Public Use
  Company Number: US-PFIZER INC-2014121825

PATIENT
  Age: 80 Year
  Sex: Female

DRUGS (2)
  1. LYRICA [Suspect]
     Indication: ATROPHY
     Dosage: UNK
  2. METHOTREXATE [Concomitant]
     Indication: RHEUMATOID ARTHRITIS
     Dosage: UNK

REACTIONS (2)
  - Night sweats [Unknown]
  - Lung disorder [Unknown]
